FAERS Safety Report 4326414-6 (Version None)
Quarter: 2004Q1

REPORT INFORMATION
  Report Type: 
  Country: None (occurrence: None)
  Receive Date: 20040323
  Receipt Date: 20040206
  Transmission Date: 20041129
  Serious: Yes (Hospitalization)
  Sender: FDA-Public Use
  Company Number: M04-341-032

PATIENT
  Age: 46 Year
  Sex: Male

DRUGS (3)
  1. VELCADE [Suspect]
     Indication: MULTIPLE MYELOMA
     Dosage: 1.3 MG/M2 BIW : INTRAVENOUS BOLUS
     Route: 040
     Dates: start: 20040101
  2. LASIX [Concomitant]
  3. PAIN MEDS [Concomitant]

REACTIONS (1)
  - THROMBOCYTOPENIA [None]
